FAERS Safety Report 5354591-7 (Version None)
Quarter: 2007Q2

REPORT INFORMATION
  Report Type: 
  Country: None (occurrence: None)
  Receive Date: 20070611
  Receipt Date: 20070604
  Transmission Date: 20071010
  Serious: Yes (Hospitalization, Other)
  Sender: FDA-Public Use
  Company Number: 2007SP009602

PATIENT
  Age: 66 Year
  Sex: Male
  Weight: 62 kg

DRUGS (4)
  1. PEG-INTRON [Suspect]
     Indication: HEPATITIS C
     Dosage: 100 MCG;QW;SC
     Route: 058
     Dates: start: 20070511, end: 20070511
  2. REBETOL [Suspect]
     Indication: HEPATITIS C
     Dosage: 800 MG;QD;PO
     Route: 048
     Dates: start: 20070511, end: 20070514
  3. ADALAT [Concomitant]
  4. HARNAL [Concomitant]

REACTIONS (5)
  - ARTERIOVENOUS FISTULA SITE COMPLICATION [None]
  - ARTERIOVENOUS MALFORMATION [None]
  - NERVE COMPRESSION [None]
  - PARAPLEGIA [None]
  - SPINAL CORD OEDEMA [None]
